FAERS Safety Report 4439128-9 (Version None)
Quarter: 2004Q3

REPORT INFORMATION
  Report Type: 
  Country: None (occurrence: None)
  Receive Date: 20040831
  Receipt Date: 20040810
  Transmission Date: 20050211
  Serious: Yes (Hospitalization)
  Sender: FDA-Public Use
  Company Number: F01200401400

PATIENT
  Age: 79 Year
  Sex: Male

DRUGS (8)
  1. (OXALIPLATIN) - SOLUTION - 150 MG [Suspect]
     Indication: COLON CANCER
     Dosage: 150 MG Q2W, INTRAVENOUS NOS
     Route: 042
     Dates: start: 20040323, end: 20040323
  2. FLUOROURACIL [Suspect]
     Dosage: 5220 MG Q2W,  INTRAVENOUS NOS
     Route: 042
     Dates: start: 20040323, end: 20040325
  3. OMNIC (TAMSULOSIN HYDROCHLORIDE) [Concomitant]
  4. COMBIVENT [Concomitant]
  5. PLUSVENT 200 (FLUTICASONE, SALMETEROL) [Concomitant]
  6. PLUSVENT  (FLUTICASONE, SALMETEROL) [Concomitant]
  7. NUCLOSINE (OMEPRAZOLE) [Concomitant]
  8. TRAMADOL HCL [Concomitant]

REACTIONS (11)
  - ABDOMINAL MASS [None]
  - ANOREXIA [None]
  - DIABETES MELLITUS NON-INSULIN-DEPENDENT [None]
  - DIARRHOEA [None]
  - HYPONATRAEMIA [None]
  - LEUKOCYTOSIS [None]
  - NEOPLASM PROGRESSION [None]
  - PYREXIA [None]
  - RESPIRATORY TRACT INFECTION [None]
  - THROMBOCYTOPENIA [None]
  - VOMITING [None]
